FAERS Safety Report 19939504 (Version 2)
Quarter: 2021Q4

REPORT INFORMATION
  Report Type: Report from Study
  Country: IT (occurrence: None)
  Receive Date: 20211011
  Receipt Date: 20211117
  Transmission Date: 20220303
  Serious: Yes (Death, Hospitalization)
  Sender: FDA-Public Use
  Company Number: IT-ROCHE-2930088

PATIENT

DRUGS (2)
  1. ERLOTINIB [Suspect]
     Active Substance: ERLOTINIB
     Indication: Non-small cell lung cancer
     Route: 065
     Dates: start: 20180515, end: 20210811
  2. BEVACIZUMAB [Suspect]
     Active Substance: BEVACIZUMAB
     Indication: Non-small cell lung cancer
     Dosage: ON 07/JUL/2021, RECEIVED MOST RECENT DOSE OF BEVACIZUMAB.
     Route: 042
     Dates: start: 20180515, end: 20210811

REACTIONS (1)
  - Cholangitis infective [Fatal]

NARRATIVE: CASE EVENT DATE: 20210808
